FAERS Safety Report 20033407 (Version 1)
Quarter: 2021Q4

REPORT INFORMATION
  Report Type: Spontaneous
  Country: US (occurrence: US)
  Receive Date: 20211104
  Receipt Date: 20211104
  Transmission Date: 20220303
  Serious: Yes (Other)
  Sender: FDA-Public Use
  Company Number: US-Fresenius Medical Care Renal Therapies Group-FMC-2109-001472

PATIENT
  Age: 74 Year
  Sex: Male
  Weight: 69 kg

DRUGS (3)
  1. DELFLEX WITH DEXTROSE 1.5% LOW MAGNESIUM LOW CALCIUM [Suspect]
     Active Substance: CALCIUM CHLORIDE\DEXTROSE\MAGNESIUM CHLORIDE\SODIUM CHLORIDE\SODIUM LACTATE
     Indication: End stage renal disease
     Dosage: EXCHANGES = 4, FILL VOLUME = 2500 ML, LAST FILL VOLUME = 200 ML, DAYTIME EXCHANGES = N/A, TOTAL DWEL
     Route: 033
     Dates: start: 20190216
  2. DELFLEX WITH DEXTROSE 2.5% LOW MAGNESIUM LOW CALCIUM [Suspect]
     Active Substance: CALCIUM CHLORIDE\DEXTROSE\MAGNESIUM CHLORIDE\SODIUM CHLORIDE\SODIUM LACTATE
     Indication: End stage renal disease
     Dosage: EXCHANGES = 4, FILL VOLUME = 2500 ML, LAST FILL VOLUME = 200 ML, DAYTIME EXCHANGES = N/A, TOTAL DWEL
     Route: 033
     Dates: start: 20190216
  3. DELFLEX WITH DEXTROSE 4.25% LOW MAGNESIUM LOW CALCIUM [Suspect]
     Active Substance: CALCIUM CHLORIDE\DEXTROSE\MAGNESIUM CHLORIDE\SODIUM CHLORIDE\SODIUM LACTATE
     Indication: End stage renal disease
     Dosage: EXCHANGES = 4, FILL VOLUME = 2500 ML, LAST FILL VOLUME = 200 ML, DAYTIME EXCHANGES = N/A, TOTAL DWEL
     Route: 033
     Dates: start: 20190216

REACTIONS (2)
  - Peritonitis bacterial [Recovered/Resolved]
  - Peritonitis [Recovered/Resolved]

NARRATIVE: CASE EVENT DATE: 20200304
